FAERS Safety Report 20195455 (Version 4)
Quarter: 2021Q4

REPORT INFORMATION
  Report Type: Report from Study
  Country: US (occurrence: US)
  Receive Date: 20211216
  Receipt Date: 20211224
  Transmission Date: 20220303
  Serious: No
  Sender: FDA-Public Use
  Company Number: US-NOVARTISTESTPH-NVSC2021US288556

PATIENT
  Sex: Female

DRUGS (2)
  1. KESIMPTA [Suspect]
     Active Substance: OFATUMUMAB
     Indication: Multiple sclerosis
     Dosage: UNK MG
     Route: 065
     Dates: start: 20211211, end: 20211214
  2. KESIMPTA [Suspect]
     Active Substance: OFATUMUMAB
     Dosage: 20 MG/0.4ML, AS DIRECTED
     Route: 058

REACTIONS (9)
  - Diarrhoea [Unknown]
  - Paraesthesia [Unknown]
  - Muscular weakness [Unknown]
  - Bacterial vaginosis [Unknown]
  - Asthenia [Unknown]
  - Pyrexia [Unknown]
  - Chills [Unknown]
  - Fatigue [Unknown]
  - Influenza like illness [Unknown]
